FAERS Safety Report 24980189 (Version 1)
Quarter: 2025Q1

REPORT INFORMATION
  Report Type: Spontaneous
  Country: US (occurrence: None)
  Receive Date: 20250214
  Receipt Date: 20250214
  Transmission Date: 20250408
  Serious: Yes (Disabling)
  Sender: FDA-CTU
  Company Number: None

PATIENT

DRUGS (1)
  1. HYDREA [Suspect]
     Active Substance: HYDROXYUREA
     Indication: Haematological malignancy
     Route: 048
     Dates: start: 20241228

REACTIONS (7)
  - Cough [None]
  - Burning sensation [None]
  - Back pain [None]
  - Flank pain [None]
  - Dyspnoea [None]
  - Pulmonary mass [None]
  - Lung opacity [None]

NARRATIVE: CASE EVENT DATE: 20250115
